FAERS Safety Report 4385572-8 (Version None)
Quarter: 2004Q2

REPORT INFORMATION
  Report Type: 
  Country: None (occurrence: None)
  Receive Date: 20040622
  Receipt Date: 20040617
  Transmission Date: 20050107
  Serious: Yes (Hospitalization)
  Sender: FDA-Public Use
  Company Number: 200410334BYL

PATIENT
  Sex: Male

DRUGS (2)
  1. ASPIRIN [Suspect]
     Dosage: 100 MG, QD, ORAL
     Route: 048
  2. PANALDINE (TICLOPIDINE HYDROCHLORIDE) [Suspect]
     Dosage: 100 MG, BID, ORAL
     Route: 048

REACTIONS (1)
  - JAUNDICE [None]
